FAERS Safety Report 18725155 (Version 1)
Quarter: 2021Q1

REPORT INFORMATION
  Report Type: Report from Study
  Country: GB (occurrence: GB)
  Receive Date: 20210111
  Receipt Date: 20210111
  Transmission Date: 20210419
  Serious: Yes (Other)
  Sender: FDA-Public Use
  Company Number: NVSC2021GB003081

PATIENT
  Sex: Female

DRUGS (1)
  1. HYRIMOZ [Suspect]
     Active Substance: ADALIMUMAB-ADAZ
     Indication: ANKYLOSING SPONDYLITIS
     Dosage: 40MG/0.8ML, EOW
     Route: 058
     Dates: start: 20190805

REACTIONS (6)
  - Suicidal ideation [Unknown]
  - Product dose omission issue [Unknown]
  - Pain [Unknown]
  - Amnesia [Unknown]
  - Depressed mood [Unknown]
  - Post-traumatic stress disorder [Unknown]
